FAERS Safety Report 6701638-9 (Version None)
Quarter: 2010Q2

REPORT INFORMATION
  Report Type: 
  Country: None (occurrence: None)
  Receive Date: 20100427
  Receipt Date: 20100414
  Transmission Date: 20101027
  Serious: Yes (Death, Hospitalization, Other)
  Sender: FDA-Public Use
  Company Number: 2009AC000108

PATIENT
  Age: 60 Year
  Sex: Male
  Weight: 107 kg

DRUGS (73)
  1. DIGOXIN [Suspect]
     Dosage: 0.25 MG; QD; PO
     Route: 048
     Dates: start: 20030101
  2. DIGOXIN                      USP (AMIDE) [Suspect]
     Dosage: 0.25 MG; QD; PO
     Route: 048
     Dates: start: 20000108, end: 20080119
  3. GLUCOTROL [Concomitant]
  4. JANUVIA [Concomitant]
  5. COUMADIN [Concomitant]
  6. GABAPENTIN [Concomitant]
  7. SPIRIVA [Concomitant]
  8. MIRTAZAPINE [Concomitant]
  9. AMBIEN [Concomitant]
  10. NORVASC [Concomitant]
  11. CYCLOBENZAPRINE [Concomitant]
  12. FUROSEMIDE [Concomitant]
  13. POTASSIUM [Concomitant]
  14. COMBIVENT [Concomitant]
  15. COREG [Concomitant]
  16. ALTACE [Concomitant]
  17. ISOSORBIDE [Concomitant]
  18. SPIRONOLACTONE [Concomitant]
  19. WARFARIN SODIUM [Concomitant]
  20. RANITIDINE [Concomitant]
  21. TEMAZEPAM [Concomitant]
  22. LANTUS [Concomitant]
  23. FLOMAX [Concomitant]
  24. ZAROXOLYN [Concomitant]
  25. ASPIRIN [Concomitant]
  26. ALLOPURINOL [Concomitant]
  27. ISORDIL [Concomitant]
  28. EFFEXOR [Concomitant]
  29. INSPRA [Concomitant]
  30. .................... [Concomitant]
  31. CEFUROXIME [Concomitant]
  32. PROMETHAZINE [Concomitant]
  33. PREDNISONE [Concomitant]
  34. CIPROFLOXACIN [Concomitant]
  35. CARVEDILOL [Concomitant]
  36. METOLAZONE [Concomitant]
  37. INSULIN [Concomitant]
  38. TRICOR [Concomitant]
  39. DICLOXACILLIN [Concomitant]
  40. POTASSIUM CHLORIDE [Concomitant]
  41. WARFARIN SODIUM [Concomitant]
  42. GLIPIZIDE [Concomitant]
  43. NITROLINGUAL [Concomitant]
  44. NEXIUM [Concomitant]
  45. ACETAMINOPHEN W/ PROPOXYPHENE HCL [Concomitant]
  46. DIPHENOXYLATE [Concomitant]
  47. ATROPINE [Concomitant]
  48. RAMIPRIL [Concomitant]
  49. CEFTIN [Concomitant]
  50. AXID [Concomitant]
  51. LOPRESSOR [Concomitant]
  52. ZESTRIL [Concomitant]
  53. DARVOCET [Concomitant]
  54. MULTIPLE VITAMINS [Concomitant]
  55. BETAPACE [Concomitant]
  56. METHOCARBAMOL [Concomitant]
  57. LONOX [Concomitant]
  58. CLOBESTASOL [Concomitant]
  59. KAYEXALATE [Concomitant]
  60. ZITHROMAX [Concomitant]
  61. LORAZEPAM [Concomitant]
  62. CEPHALEXIN [Concomitant]
  63. REMERON [Concomitant]
  64. PEN-VEE K [Concomitant]
  65. ROCEPHIN [Concomitant]
  66. PENICILLIN G [Concomitant]
  67. METFORMIN HCL [Concomitant]
  68. PHENERGAN W/ CODEINE [Concomitant]
  69. DOBUTAMINE HCL [Concomitant]
  70. ALLOPURINOL [Concomitant]
  71. ASCENSIA [Concomitant]
  72. GLIPIZIDE [Concomitant]
  73. EFFEXOR [Concomitant]

REACTIONS (50)
  - ACTIVATED PARTIAL THROMBOPLASTIN TIME PROLONGED [None]
  - ANXIETY [None]
  - ARTERIOSCLEROSIS CORONARY ARTERY [None]
  - ATRIAL FIBRILLATION [None]
  - BLEEDING VARICOSE VEIN [None]
  - BLOOD SODIUM DECREASED [None]
  - CARDIAC FAILURE [None]
  - CARDIAC FAILURE CONGESTIVE [None]
  - CARDIOACTIVE DRUG LEVEL INCREASED [None]
  - CARDIOMEGALY [None]
  - CARDIOMYOPATHY [None]
  - CELLULITIS [None]
  - CERUMEN IMPACTION [None]
  - CHRONIC OBSTRUCTIVE PULMONARY DISEASE [None]
  - CONGESTIVE CARDIOMYOPATHY [None]
  - CONSTIPATION [None]
  - CORONARY ARTERY DISEASE [None]
  - DEHYDRATION [None]
  - DEPRESSION [None]
  - DIABETES MELLITUS [None]
  - DIABETES MELLITUS INADEQUATE CONTROL [None]
  - DIARRHOEA [None]
  - ECONOMIC PROBLEM [None]
  - GLYCOSYLATED HAEMOGLOBIN INCREASED [None]
  - HAEMATURIA [None]
  - HAEMOGLOBIN DECREASED [None]
  - HYPERKALAEMIA [None]
  - HYPOAESTHESIA [None]
  - HYPOGLYCAEMIA [None]
  - HYPOTENSION [None]
  - INSOMNIA [None]
  - INTRACARDIAC THROMBUS [None]
  - LEFT VENTRICULAR DYSFUNCTION [None]
  - LOBAR PNEUMONIA [None]
  - MITRAL VALVE INCOMPETENCE [None]
  - MULTI-ORGAN FAILURE [None]
  - MULTIPLE INJURIES [None]
  - MYOCARDIAL INFARCTION [None]
  - NERVOUSNESS [None]
  - NEUROPATHY PERIPHERAL [None]
  - PLEURAL EFFUSION [None]
  - POOR QUALITY SLEEP [None]
  - PSORIASIS [None]
  - RENAL FAILURE [None]
  - SCAR [None]
  - SCROTAL SWELLING [None]
  - THERAPEUTIC AGENT TOXICITY [None]
  - TYPE 2 DIABETES MELLITUS [None]
  - UNEVALUABLE EVENT [None]
  - URINARY RETENTION [None]
